FAERS Safety Report 5655920-7 (Version None)
Quarter: 2008Q1

REPORT INFORMATION
  Report Type: 
  Country: None (occurrence: None)
  Receive Date: 20080307
  Receipt Date: 20080212
  Transmission Date: 20080703
  Serious: No
  Sender: FDA-Public Use
  Company Number: US-BOEHRINGER INGELHEIM GMBH, GERMANY-2008-BP-02216BP

PATIENT
  Age: 90 Year
  Sex: Male

DRUGS (9)
  1. SPIRIVA [Suspect]
     Indication: RESPIRATORY DISORDER
     Route: 055
     Dates: start: 20071220
  2. SPIRIVA [Suspect]
     Indication: BRONCHITIS
  3. SPIRIVA [Suspect]
     Indication: EMPHYSEMA
  4. XOPENEX [Suspect]
     Indication: RESPIRATORY DISORDER
     Dates: start: 20071220
  5. XOPENEX [Suspect]
     Indication: BRONCHITIS
  6. XOPENEX [Suspect]
     Indication: EMPHYSEMA
  7. TRELSTAR DEPOT [Suspect]
     Indication: PROSTATE CANCER
     Route: 030
     Dates: start: 20071227, end: 20071227
  8. TRELSTAR DEPOT [Suspect]
     Route: 030
     Dates: start: 20080109, end: 20080109
  9. PROCRIT [Suspect]
     Dates: start: 20080109

REACTIONS (2)
  - BONE PAIN [None]
  - JOINT SWELLING [None]
